FAERS Safety Report 9036727 (Version 3)
Quarter: 2013Q1

REPORT INFORMATION
  Report Type: Spontaneous
  Country: FR (occurrence: None)
  Receive Date: 20130114
  Receipt Date: 20130307
  Transmission Date: 20140127
  Serious: Yes (Death, Life-Threatening, Hospitalization, Disabling)
  Sender: FDA-Public Use
  Company Number: 2013FR0026

PATIENT
  Age: 54 Year
  Sex: Female

DRUGS (6)
  1. KINERET (ANAKINRA), NOT AVAILABLE [Suspect]
     Indication: JUVENILE IDIOPATHIC ARTHRITIS
     Route: 058
     Dates: start: 201211, end: 20130103
  2. ENDOXAN [Suspect]
     Dates: start: 20130126
  3. LOVENOX [Suspect]
  4. COUMADINE [Suspect]
  5. CO-TRIMOXAZOLE (TRIMETHOPRIM, SULFAMETHOXAZOLE) (TABLETS) [Concomitant]
  6. FOSAVANCE (ALENDRONATE) [Concomitant]

REACTIONS (24)
  - Acute respiratory distress syndrome [None]
  - Pneumonia [None]
  - Generalised oedema [None]
  - Multi-organ failure [None]
  - Grand mal convulsion [None]
  - Drug interaction [None]
  - Cardiac failure [None]
  - Shock [None]
  - Delirium [None]
  - Pneumonia aspiration [None]
  - Purpura [None]
  - Pyrexia [None]
  - Lipase increased [None]
  - Dyspnoea [None]
  - Myoclonic epilepsy [None]
  - Pancytopenia [None]
  - Confusional state [None]
  - Hypernatraemia [None]
  - Cardiac arrest [None]
  - Hypoxia [None]
  - Pulmonary congestion [None]
  - Cytomegalovirus infection [None]
  - Bacterial pyelonephritis [None]
  - Pulmonary embolism [None]
